FAERS Safety Report 7713704-X (Version None)
Quarter: 2011Q3

REPORT INFORMATION
  Report Type: 
  Country: None (occurrence: None)
  Receive Date: 20110826
  Receipt Date: 20110818
  Transmission Date: 20111222
  Serious: Yes (Death, Other)
  Sender: FDA-Public Use
  Company Number: US-PFIZER INC-2008073833

PATIENT
  Sex: Female
  Weight: 59 kg

DRUGS (5)
  1. NEURONTIN [Suspect]
     Dosage: UNK
     Route: 048
  2. GABAPENTIN [Suspect]
     Dosage: UNK
  3. NEURONTIN [Suspect]
     Dosage: UNK
  4. SKELAXIN [Concomitant]
     Dosage: 800 MG, 1X/DAY
     Dates: start: 20050701
  5. NEURONTIN [Suspect]
     Indication: PAIN
     Dosage: UNK

REACTIONS (4)
  - DRUG INEFFECTIVE FOR UNAPPROVED INDICATION [None]
  - COMPLETED SUICIDE [None]
  - ANXIETY [None]
  - SUICIDAL IDEATION [None]
